FAERS Safety Report 13276606 (Version 2)
Quarter: 2017Q2

REPORT INFORMATION
  Report Type: Report from Study
  Country: CA (occurrence: CA)
  Receive Date: 20170228
  Receipt Date: 20170428
  Transmission Date: 20170830
  Serious: Yes (Other)
  Sender: FDA-Public Use
  Company Number: CA-ROCHE-1898969

PATIENT
  Age: 60 Year
  Sex: Male
  Weight: 99 kg

DRUGS (12)
  1. LOMUSTINE. [Concomitant]
     Active Substance: LOMUSTINE
  2. AVASTIN [Suspect]
     Active Substance: BEVACIZUMAB
     Route: 042
     Dates: start: 20161114
  3. DECADRON [Concomitant]
     Active Substance: DEXAMETHASONE
     Route: 065
     Dates: start: 20160425
  4. AVASTIN [Suspect]
     Active Substance: BEVACIZUMAB
     Indication: PRODUCT USED FOR UNKNOWN INDICATION
     Dosage: INITIAL DOSING DETAILS NOT PROVIDED
     Route: 042
     Dates: start: 20160414
  5. PANTOLOC [Concomitant]
     Active Substance: PANTOPRAZOLE SODIUM
  6. CELEXA [Concomitant]
     Active Substance: CITALOPRAM HYDROBROMIDE
  7. LIPITOR [Concomitant]
     Active Substance: ATORVASTATIN CALCIUM
  8. KEPPRA [Concomitant]
     Active Substance: LEVETIRACETAM
  9. CORTISONE [Concomitant]
     Active Substance: CORTISONE\HYDROCORTISONE
  10. AVASTIN [Suspect]
     Active Substance: BEVACIZUMAB
     Dosage: INFUSION #19
     Route: 042
     Dates: start: 20170220
  11. SEROQUEL [Concomitant]
     Active Substance: QUETIAPINE FUMARATE
  12. ASAPHEN [Concomitant]
     Active Substance: ASPIRIN

REACTIONS (17)
  - Viral upper respiratory tract infection [Not Recovered/Not Resolved]
  - Aphasia [Unknown]
  - Insomnia [Unknown]
  - Diarrhoea [Unknown]
  - Body temperature decreased [Unknown]
  - Balance disorder [Unknown]
  - Blood pressure increased [Unknown]
  - Loss of personal independence in daily activities [Not Recovered/Not Resolved]
  - Fatigue [Not Recovered/Not Resolved]
  - Blood pressure systolic increased [Unknown]
  - Dry skin [Not Recovered/Not Resolved]
  - Speech disorder [Unknown]
  - Pain [Unknown]
  - Aphasia [Unknown]
  - Blood pressure diastolic increased [Unknown]
  - Amnesia [Unknown]
  - Dysarthria [Unknown]

NARRATIVE: CASE EVENT DATE: 20160425
